FAERS Safety Report 10989519 (Version 2)
Quarter: 2015Q2

REPORT INFORMATION
  Report Type: Spontaneous
  Country: US (occurrence: US)
  Receive Date: 20150406
  Receipt Date: 20150513
  Transmission Date: 20150821
  Serious: Yes (Death, Hospitalization, Other)
  Sender: FDA-Public Use
  Company Number: US-AMGEN-USASP2015032195

PATIENT
  Age: 89 Year
  Sex: Female

DRUGS (18)
  1. PROLIA [Suspect]
     Active Substance: DENOSUMAB
     Indication: OSTEOPOROSIS
     Route: 065
     Dates: start: 20140804
  2. VITAMIN D                          /00107901/ [Concomitant]
     Active Substance: ERGOCALCIFEROL
  3. ALPRAZOLAM. [Concomitant]
     Active Substance: ALPRAZOLAM
  4. CILOSTAZOL. [Concomitant]
     Active Substance: CILOSTAZOL
  5. ADVAIR HFA [Concomitant]
     Active Substance: FLUTICASONE PROPIONATE\SALMETEROL XINAFOATE
  6. VITAMIN B12 [Concomitant]
     Active Substance: CYANOCOBALAMIN
  7. VALSARTAN. [Concomitant]
     Active Substance: VALSARTAN
  8. BUMEX [Concomitant]
     Active Substance: BUMETANIDE
  9. PLAVIX [Concomitant]
     Active Substance: CLOPIDOGREL BISULFATE
  10. METFORMIN [Concomitant]
     Active Substance: METFORMIN HYDROCHLORIDE
  11. METOPROLOL [Concomitant]
     Active Substance: METOPROLOL
  12. SIMVASTATIN. [Concomitant]
     Active Substance: SIMVASTATIN
  13. ALBUTEROL                          /00139501/ [Concomitant]
     Active Substance: ALBUTEROL
  14. SINGULAIR [Concomitant]
     Active Substance: MONTELUKAST SODIUM
  15. IPRATROPIUM [Concomitant]
     Active Substance: IPRATROPIUM
  16. CALCITRIOL. [Concomitant]
     Active Substance: CALCITRIOL
  17. RANITIDINE [Concomitant]
     Active Substance: RANITIDINE\RANITIDINE HYDROCHLORIDE
  18. VOLTAREN [Concomitant]
     Active Substance: DICLOFENAC SODIUM

REACTIONS (12)
  - Peripheral ischaemia [Unknown]
  - Arthralgia [Unknown]
  - Myocardial infarction [Fatal]
  - Myalgia [Unknown]
  - Peripheral artery thrombosis [Unknown]
  - Hepatic cirrhosis [Unknown]
  - Pleural effusion [Unknown]
  - Drug effect incomplete [Unknown]
  - Fatigue [Unknown]
  - Bone pain [Unknown]
  - Chest pain [Unknown]
  - Atelectasis [Unknown]

NARRATIVE: CASE EVENT DATE: 201411
